FAERS Safety Report 23388422 (Version 1)
Quarter: 2024Q1

REPORT INFORMATION
  Report Type: Spontaneous
  Country: US (occurrence: None)
  Receive Date: 20240110
  Receipt Date: 20240110
  Transmission Date: 20240410
  Serious: Yes (Hospitalization)
  Sender: FDA-Public Use
  Company Number: None

PATIENT
  Sex: Female

DRUGS (20)
  1. CREON [Suspect]
     Active Substance: PANCRELIPASE AMYLASE\PANCRELIPASE LIPASE\PANCRELIPASE PROTEASE
     Indication: Cystic fibrosis
     Dosage: 36000-114000 UNIT ORAL??TAKE 5 CAPSULES BY MOUTH THREE TIMES DAILY WITH MEALS AND 4 CAPSULES DAILY W
     Route: 048
     Dates: start: 20190212
  2. ALBUTEROL NEB 0.083% [Concomitant]
  3. AZITHROMYCIN TAB 500MG [Concomitant]
  4. BAQSIMI ONE POW 3MG/DOSE [Concomitant]
  5. COMPLETE FORM SOFTGEL [Concomitant]
  6. FLUCONAZOLE TAB 150MG [Concomitant]
  7. FLUTICASONE [Concomitant]
     Active Substance: FLUTICASONE
  8. IBUPROFEN TAB 800MG [Concomitant]
  9. ITRACONAZOLE CAP 100MG [Concomitant]
  10. MONTELUKAST TAB 10MG [Concomitant]
  11. POLYETH GLYC POW 3350 NF [Concomitant]
  12. PREDNISONE TAB 10MG [Concomitant]
  13. PREDNISONE TAB 20MG [Concomitant]
  14. PULMOZYME SOL 1MG/ML [Concomitant]
  15. SOD CHL 7%4ML 4=1 NEB [Concomitant]
  16. SODIUM CHLOR NEB 7% [Concomitant]
  17. TOBRAMYCIN NEB 300/5ML [Concomitant]
  18. TRESIBA FLEX INJ 100UNIT [Concomitant]
  19. TRETINOIN CRE 0.05% [Concomitant]
  20. VITAMIN D CAP 5000UNT [Concomitant]

REACTIONS (1)
  - Hospitalisation [None]
